FAERS Safety Report 4727391-6 (Version None)
Quarter: 2005Q3

REPORT INFORMATION
  Report Type: 
  Country: None (occurrence: None)
  Receive Date: 20050727
  Receipt Date: 20050727
  Transmission Date: 20060218
  Serious: Yes (Hospitalization)
  Sender: FDA-Public Use
  Company Number: None

PATIENT
  Age: 43 Year
  Sex: Male
  Weight: 65.7 kg

DRUGS (11)
  1. WARFARIN [Suspect]
     Dosage: VARIOUS, VARIOUS, ORAL
     Route: 048
  2. GATIFLOXACIN [Concomitant]
  3. FENTANYL [Concomitant]
  4. DOCUSATE NA [Concomitant]
  5. DEXAMETHASONE [Concomitant]
  6. PROMETHAZINE HCL [Concomitant]
  7. RANITIDINE HCL [Concomitant]
  8. COUMADIN [Concomitant]
  9. HYDROMORPHONE HCL [Concomitant]
  10. PAROXETINE HCL [Concomitant]
  11. DM 10/GUAIFENESIN [Concomitant]

REACTIONS (1)
  - INTERNATIONAL NORMALISED RATIO INCREASED [None]
